FAERS Safety Report 7353539-3 (Version None)
Quarter: 2011Q1

REPORT INFORMATION
  Report Type: 
  Country: None (occurrence: None)
  Receive Date: 20110315
  Receipt Date: 20110308
  Transmission Date: 20110831
  Serious: Yes (Hospitalization, Other)
  Sender: FDA-Public Use
  Company Number: US-ELI_LILLY_AND_COMPANY-US201101003893

PATIENT
  Sex: Female
  Weight: 39.4 kg

DRUGS (24)
  1. FORTEO [Suspect]
     Indication: OSTEOPOROSIS
     Dosage: 20 UG, DAILY (1/D)
     Dates: start: 20110113, end: 20110115
  2. CELLCEPT [Concomitant]
     Dosage: 500 MG, 2/D
     Route: 048
  3. MULTI-VITAMIN [Concomitant]
     Dosage: UNK, DAILY (1/D)
     Route: 048
  4. CELEXA [Concomitant]
     Dosage: 20 MG, DAILY (1/D)
     Route: 048
  5. ULTRAM [Concomitant]
     Dosage: 50 MG, AS NEEDED
     Route: 048
  6. CALCIUM PLUS D3 [Concomitant]
     Dosage: UNK, 3/D
     Route: 048
  7. ZYPREXA [Concomitant]
     Dosage: 2.5 MG, EACH EVENING
     Route: 060
  8. PREDNISONE [Concomitant]
  9. BACLOFEN [Concomitant]
     Dosage: 10 MG, DAILY (1/D)
     Route: 048
  10. LEVAQUIN [Concomitant]
     Dosage: 750 MG, QOD
     Route: 048
  11. ASPIRIN [Concomitant]
     Dosage: 81 MG, DAILY (1/D)
  12. FOSAMAX [Concomitant]
     Dosage: 70 MG, WEEKLY (1/W)
     Route: 048
  13. AMIODARONE HCL [Concomitant]
     Dosage: 200 MG, DAILY (1/D)
     Route: 048
  14. URSODIOL [Concomitant]
     Dosage: 300 MG, 3/D
     Route: 048
  15. LEVOTHYROXINE [Concomitant]
     Dosage: 50 MG, DAILY (1/D)
     Route: 048
  16. ERGOCALCIFEROL [Concomitant]
     Dosage: 50000 U, WEEKLY (1/W)
     Route: 048
  17. PROGRAF [Concomitant]
     Dosage: 5 MG, 2/D
     Route: 048
  18. PEPCID [Concomitant]
     Dosage: 20 MG, 2/D
     Route: 048
  19. MIACALCIN [Concomitant]
     Dosage: 200 U, DAILY (1/D)
     Route: 045
  20. KLOR-CON [Concomitant]
     Dosage: 40 MEQ, DAILY (1/D)
     Route: 048
  21. BENEFIBER [Concomitant]
     Dosage: UNK, 2/D
  22. ZOFRAN [Concomitant]
     Dosage: 4 MG, AS NEEDED
  23. ULTRAM [Concomitant]
     Dosage: 100 MG, AS NEEDED
     Route: 048
  24. LASIX [Concomitant]
     Dosage: 40 MG, DAILY (1/D)
     Route: 048

REACTIONS (13)
  - PULMONARY OEDEMA [None]
  - BACK PAIN [None]
  - WEIGHT DECREASED [None]
  - HOSPITALISATION [None]
  - PAIN [None]
  - DIARRHOEA [None]
  - DIZZINESS [None]
  - ADVERSE REACTION [None]
  - ARTHRALGIA [None]
  - INSOMNIA [None]
  - LIVER DISORDER [None]
  - HEART RATE INCREASED [None]
  - CONSTIPATION [None]
